FAERS Safety Report 17656060 (Version 1)
Quarter: 2020Q2

REPORT INFORMATION
  Report Type: Spontaneous
  Country: US (occurrence: US)
  Receive Date: 20200410
  Receipt Date: 20200410
  Transmission Date: 20200713
  Serious: Yes (Other)
  Sender: FDA-Public Use
  Company Number: US-GYP-000111

PATIENT
  Age: 21 Year

DRUGS (1)
  1. PREDNISONE. [Suspect]
     Active Substance: PREDNISONE
     Indication: RETINAL PIGMENT EPITHELIOPATHY
     Route: 048

REACTIONS (4)
  - Product use in unapproved indication [Unknown]
  - Retinal pigment epitheliopathy [Unknown]
  - Hallucination [Unknown]
  - Disease progression [Unknown]
